FAERS Safety Report 25785699 (Version 1)
Quarter: 2025Q3

REPORT INFORMATION
  Report Type: Spontaneous
  Country: CN (occurrence: CN)
  Receive Date: 20250910
  Receipt Date: 20250910
  Transmission Date: 20251020
  Serious: Yes (Hospitalization)
  Sender: ROCHE
  Company Number: CN-ROCHE-10000376435

PATIENT
  Age: 26 Year
  Sex: Female
  Weight: 31.75 kg

DRUGS (1)
  1. GLOFITAMAB [Suspect]
     Active Substance: GLOFITAMAB
     Indication: Diffuse large B-cell lymphoma
     Route: 042

REACTIONS (3)
  - Intestinal perforation [Unknown]
  - Infection [Unknown]
  - Abdominal abscess [Unknown]
